FAERS Safety Report 19093697 (Version 1)
Quarter: 2021Q2

REPORT INFORMATION
  Report Type: Spontaneous
  Country: FR (occurrence: FR)
  Receive Date: 20210405
  Receipt Date: 20210405
  Transmission Date: 20210717
  Serious: Yes (Hospitalization)
  Sender: FDA-Public Use
  Company Number: FR-MYLANLABS-2021M1020332

PATIENT
  Age: 53 Year
  Sex: Male

DRUGS (5)
  1. TACROLIMUS. [Suspect]
     Active Substance: TACROLIMUS
     Indication: IMMUNOSUPPRESSANT DRUG THERAPY
     Dosage: UNK
     Route: 065
  2. PANTOPRAZOLE [Suspect]
     Active Substance: PANTOPRAZOLE
     Indication: PRODUCT USED FOR UNKNOWN INDICATION
     Dosage: 20 MILLIGRAM
     Route: 065
  3. ASPIRIN                            /00002701/ [Concomitant]
     Active Substance: ASPIRIN
     Indication: HEPATIC ARTERY STENOSIS
     Dosage: 75 MILLIGRAM
     Route: 065
  4. EVEROLIMUS. [Suspect]
     Active Substance: EVEROLIMUS
     Indication: IMMUNOSUPPRESSANT DRUG THERAPY
     Dosage: UNK
     Route: 065
  5. CEFTRIAXONE. [Concomitant]
     Active Substance: CEFTRIAXONE
     Indication: EVIDENCE BASED TREATMENT
     Dosage: 2 GRAM, QD; INTRAVENOUS (NOT SPECIFIED)
     Route: 042

REACTIONS (4)
  - Condition aggravated [Recovered/Resolved]
  - Hypomagnesaemia [Recovered/Resolved]
  - Overdose [Recovered/Resolved]
  - Chondrocalcinosis pyrophosphate [Recovered/Resolved]
